FAERS Safety Report 22615261 (Version 3)
Quarter: 2023Q4

REPORT INFORMATION
  Report Type: Report from Study
  Country: US (occurrence: US)
  Receive Date: 20230619
  Receipt Date: 20231018
  Transmission Date: 20240110
  Serious: Yes (Other)
  Sender: FDA-Public Use
  Company Number: US-ARGENX-2023-ARGX-US001904

PATIENT

DRUGS (3)
  1. VYVGART [Suspect]
     Active Substance: EFGARTIGIMOD ALFA-FCAB
     Indication: Myasthenia gravis
     Dosage: 10 MG/KG
     Route: 042
     Dates: start: 20230505
  2. VYVGART [Suspect]
     Active Substance: EFGARTIGIMOD ALFA-FCAB
     Dosage: 10 MG/KG
     Route: 042
     Dates: start: 20230526
  3. RITUXAN [Suspect]
     Active Substance: RITUXIMAB
     Indication: Back pain
     Dosage: UNK

REACTIONS (9)
  - Metastasis [Unknown]
  - Eyelid ptosis [Unknown]
  - Back pain [Unknown]
  - Prostatic specific antigen increased [Unknown]
  - Contusion [Unknown]
  - Skin laceration [Unknown]
  - Product storage error [Unknown]
  - Dysgeusia [Unknown]
  - Ageusia [Unknown]
